FAERS Safety Report 9666799 (Version 3)
Quarter: 2021Q4

REPORT INFORMATION
  Report Type: Report from Study
  Country: US (occurrence: US)
  Receive Date: 20131104
  Receipt Date: 20211214
  Transmission Date: 20220303
  Serious: Yes (Hospitalization)
  Sender: FDA-Public Use
  Company Number: US-SHIRE-ALL1-2013-07503

PATIENT
  Age: 29 Year
  Sex: Male

DRUGS (5)
  1. IDURSULFASE [Suspect]
     Active Substance: IDURSULFASE
     Indication: Mucopolysaccharidosis II
     Dosage: 0.50 MILLIGRAM/KILOGRAM, 1X/WEEK
     Route: 041
     Dates: start: 20100204
  2. IDURSULFASE [Suspect]
     Active Substance: IDURSULFASE
     Dosage: 0.5 MILLIGRAM/KILOGRAM, 1X/WEEK
     Route: 042
     Dates: start: 20100719
  3. IDURSULFASE [Suspect]
     Active Substance: IDURSULFASE
     Dosage: 0.46 MILLIGRAM/KILOGRAM, QD
     Route: 042
     Dates: start: 20120726
  4. MODAFINIL [Concomitant]
     Active Substance: MODAFINIL
     Indication: Somnolence
     Dosage: 5 MG, 1X/DAY:QD
     Route: 048
     Dates: start: 20110324
  5. POTASSIUM CHLORIDE [Concomitant]
     Active Substance: POTASSIUM CHLORIDE
     Indication: Blood potassium abnormal
     Dosage: 20 MEQ, 1X/DAY:QD
     Route: 048
     Dates: start: 20100603

REACTIONS (2)
  - Incisional drainage [Recovered/Resolved]
  - Haemoglobin decreased [Recovered/Resolved]

NARRATIVE: CASE EVENT DATE: 20110713
